FAERS Safety Report 7719064-2 (Version None)
Quarter: 2011Q3

REPORT INFORMATION
  Report Type: 
  Country: None (occurrence: None)
  Receive Date: 20110830
  Receipt Date: 20110823
  Transmission Date: 20111222
  Serious: Yes (Other)
  Sender: FDA-Public Use
  Company Number: US-MERCK-1108USA03145

PATIENT
  Age: 50 Year
  Sex: Male

DRUGS (6)
  1. DECADRON [Suspect]
     Route: 048
     Dates: start: 20071011, end: 20071014
  2. DECADRON [Suspect]
     Route: 048
     Dates: start: 20070830, end: 20070902
  3. DECADRON [Suspect]
     Route: 048
     Dates: start: 20070809, end: 20070812
  4. DECADRON [Suspect]
     Route: 048
     Dates: start: 20071213, end: 20071216
  5. DECADRON [Suspect]
     Route: 048
     Dates: start: 20071108, end: 20071111
  6. REVLIMID [Suspect]
     Indication: MULTIPLE MYELOMA
     Dosage: DAILY X 21 OF 28 DAYS
     Route: 048
     Dates: start: 20070809, end: 20071213

REACTIONS (11)
  - NEUROPATHY PERIPHERAL [None]
  - BLOOD COUNT ABNORMAL [None]
  - DIARRHOEA [None]
  - FEELING ABNORMAL [None]
  - APATHY [None]
  - RIB FRACTURE [None]
  - CHEST PAIN [None]
  - WEIGHT INCREASED [None]
  - RASH PRURITIC [None]
  - BALANCE DISORDER [None]
  - DIZZINESS [None]
